FAERS Safety Report 21555669 (Version 2)
Quarter: 2022Q4

REPORT INFORMATION
  Report Type: Report from Study
  Country: IT (occurrence: IT)
  Receive Date: 20221104
  Receipt Date: 20221116
  Transmission Date: 20230113
  Serious: Yes (Hospitalization, Other)
  Sender: FDA-Public Use
  Company Number: None

PATIENT
  Age: 17 Year
  Sex: Female
  Weight: 94 kg

DRUGS (9)
  1. METHOTREXATE (METHOTREXATE SODIUM) [Suspect]
     Active Substance: METHOTREXATE SODIUM
     Indication: Acute lymphocytic leukaemia
     Dosage: 12 MG IN DATA 20/07, 10/08, 07/09722 ,   METOTRESSATO TEVA , DURATION : 49 DAYS
     Dates: start: 20220720, end: 20220907
  2. VINCRISTINE [Suspect]
     Active Substance: VINCRISTINE
     Indication: Acute lymphocytic leukaemia
     Dosage: 2 MG IN DATA 21/07, 28/07, 05/08 12/08/22 , R VINCRISTINA TEVA ITALIA  , DURATION : 22 DAYS
     Dates: start: 20220721, end: 20220812
  3. CYTARABINE [Suspect]
     Active Substance: CYTARABINE
     Indication: Acute lymphocytic leukaemia
     Dosage: 30 MG IN DATA 20/07, 10/08 E 07/09/22 ,  CITARABINA ACCORD , DURATION : 49 DAYS
     Dates: start: 20220720, end: 20220907
  4. THIOGUANINE ANHYDROUS [Suspect]
     Active Substance: THIOGUANINE ANHYDROUS
     Indication: Acute lymphocytic leukaemia
     Dosage: 40 MILLIGRAM DAILY; DURATION : 11 DAYS  , TIOGUANINA ASPEN
     Dates: start: 20220905, end: 20220916
  5. CYCLOPHOSPHAMIDE [Suspect]
     Active Substance: CYCLOPHOSPHAMIDE
     Indication: Acute lymphocytic leukaemia
     Dosage: 2000 MILLIGRAM DAILY; 2000 MG / DAY   IN DATA 05/09/22 ,
     Dates: start: 20220905, end: 20220905
  6. ONCASPAR [Suspect]
     Active Substance: PEGASPARGASE
     Indication: Acute lymphocytic leukaemia
     Dosage: 2000 U / I ON 21/07 AND 01/08/22 , DURATION : 11 DAYS
     Dates: start: 20220721, end: 20220801
  7. IDARUBICIN [Suspect]
     Active Substance: IDARUBICIN
     Indication: Acute lymphocytic leukaemia
     Dosage: 12 MG ON 07/21, 07/28, 08/05, 08/12/22 , DURATION : 22 DAYS
     Dates: start: 20220721, end: 20220812
  8. METHYLPREDNISOLONE [Concomitant]
     Active Substance: METHYLPREDNISOLONE
     Indication: Acute lymphocytic leukaemia
     Dosage: 10 MG IN DATA 20/07, 10/08 E 07/09/22 , DURATION : 49 DAYS
     Dates: start: 20220720, end: 20220907
  9. DECADRON [Concomitant]
     Active Substance: DEXAMETHASONE
     Indication: Acute lymphocytic leukaemia
     Dosage: 12 MG / DAY FROM DAY 07/21 TO 08/04/22,6 MG / DAY FROM 05/08 TO 07/08/22,3 MG / DAY FROM 08/08 TO 10
     Dates: start: 20220721, end: 20220810

REACTIONS (12)
  - Hypogammaglobulinaemia [Unknown]
  - Drug-induced liver injury [Recovered/Resolved]
  - Febrile neutropenia [Recovered/Resolved]
  - Pancytopenia [Recovering/Resolving]
  - Leukopenia [Not Recovered/Not Resolved]
  - Anaemia [Not Recovered/Not Resolved]
  - Stomatitis [Recovered/Resolved]
  - Hyperglycaemia [Recovered/Resolved]
  - Pain in extremity [Recovered/Resolved]
  - Back pain [Recovered/Resolved]
  - Hypercholesterolaemia [Unknown]
  - Lipase increased [Unknown]

NARRATIVE: CASE EVENT DATE: 20220726
